FAERS Safety Report 8095806-4 (Version None)
Quarter: 2012Q1

REPORT INFORMATION
  Report Type: 
  Country: None (occurrence: None)
  Receive Date: 20120129
  Receipt Date: 20111215
  Transmission Date: 20120608
  Serious: Yes (Other)
  Sender: FDA-Public Use
  Company Number: US-ABBOTT-11P-163-0883290-00

PATIENT
  Sex: Male

DRUGS (5)
  1. HUMIRA [Suspect]
     Indication: PSORIASIS
     Dates: end: 20111201
  2. COLCHICINE [Concomitant]
     Indication: GOUT
  3. ALLOPURINOL [Concomitant]
     Indication: GOUT
  4. FISH OIL [Concomitant]
     Indication: PRODUCT USED FOR UNKNOWN INDICATION
  5. LOTENSIN [Concomitant]
     Indication: HYPERTENSION

REACTIONS (1)
  - THYROID CANCER [None]
